FAERS Safety Report 12075639 (Version 1)
Quarter: 2016Q1

REPORT INFORMATION
  Report Type: Spontaneous
  Country: ES (occurrence: ES)
  Receive Date: 20160213
  Receipt Date: 20160213
  Transmission Date: 20160526
  Serious: Yes (Other)
  Sender: FDA-Public Use
  Company Number: ES-BRISTOL-MYERS SQUIBB COMPANY-BMS-2016-010046

PATIENT

DRUGS (1)
  1. NIVOLUMAB BMS [Suspect]
     Active Substance: NIVOLUMAB
     Indication: NON-SMALL CELL LUNG CANCER
     Dosage: UNAVAILABLE
     Route: 065

REACTIONS (1)
  - Carcinoembryonic antigen increased [Unknown]
